FAERS Safety Report 25691642 (Version 1)
Quarter: 2025Q3

REPORT INFORMATION
  Report Type: Spontaneous
  Country: EU (occurrence: None)
  Receive Date: 20250818
  Receipt Date: 20250818
  Transmission Date: 20251020
  Serious: Yes (Other)
  Sender: HQ SPECIALTY
  Company Number: EU-MLMSERVICE-20250804-PI601318-00202-1

PATIENT
  Age: 84 Year

DRUGS (4)
  1. MEROPENEM [Suspect]
     Active Substance: MEROPENEM
     Indication: Clostridial infection
  2. LINEZOLID [Suspect]
     Active Substance: LINEZOLID
     Indication: Superinfection bacterial
  3. BACLOFEN [Concomitant]
     Active Substance: BACLOFEN
  4. INSULIN NOS [Concomitant]
     Active Substance: INSULIN NOS
     Indication: Blood glucose increased

REACTIONS (1)
  - Acute generalised exanthematous pustulosis [Unknown]
